FAERS Safety Report 21224012 (Version 1)
Quarter: 2022Q3

REPORT INFORMATION
  Report Type: Spontaneous
  Country: US (occurrence: US)
  Receive Date: 20220817
  Receipt Date: 20220817
  Transmission Date: 20221027
  Serious: No
  Sender: FDA-Public Use
  Company Number: US-SA-2022MK000004

PATIENT
  Age: 55 Year
  Sex: Male
  Weight: 74.910 kg

DRUGS (7)
  1. AFREZZA [Suspect]
     Active Substance: INSULIN HUMAN
     Indication: Type 1 diabetes mellitus
  2. AFREZZA [Suspect]
     Active Substance: INSULIN HUMAN
  3. ZESTRIL [Concomitant]
     Active Substance: LISINOPRIL
     Indication: Type 1 diabetes mellitus
     Dosage: DISCONTINUED ZESTRIL AND STARTED LISINOPRIL (BRAND TO GENERIC) ON AN UNKNOWN DATE
     Route: 048
     Dates: start: 1970
  4. LISINOPRIL [Concomitant]
     Active Substance: LISINOPRIL
     Indication: Type 1 diabetes mellitus
     Route: 048
  5. LANTUS [Concomitant]
     Active Substance: INSULIN GLARGINE
     Indication: Type 1 diabetes mellitus
     Dates: start: 1970
  6. LANTUS [Concomitant]
     Active Substance: INSULIN GLARGINE
     Dates: start: 1970
  7. HUMALOG [Concomitant]
     Active Substance: INSULIN LISPRO
     Indication: Type 1 diabetes mellitus
     Dates: start: 1970

REACTIONS (2)
  - Blood glucose fluctuation [Unknown]
  - Blood glucose decreased [Unknown]
